FAERS Safety Report 9605620 (Version 1)
Quarter: 2013Q4

REPORT INFORMATION
  Report Type: Spontaneous
  Country: FR (occurrence: FR)
  Receive Date: 20131008
  Receipt Date: 20131008
  Transmission Date: 20140711
  Serious: Yes (Hospitalization)
  Sender: FDA-Public Use
  Company Number: FR-PFIZER INC-2013281720

PATIENT
  Age: 65 Year
  Sex: Male

DRUGS (7)
  1. INLYTA [Suspect]
     Indication: CLEAR CELL RENAL CELL CARCINOMA
     Dosage: 3 MG, 2X/DAY
     Route: 048
     Dates: start: 20130814, end: 20130910
  2. ATENOLOL [Concomitant]
     Dosage: UNK
  3. AMLOR [Concomitant]
     Dosage: UNK
  4. LEVOTHYROX [Concomitant]
     Dosage: UNK
  5. KEPPRA [Concomitant]
     Dosage: UNK
  6. SOLUPRED [Concomitant]
     Dosage: UNK
  7. OMEPRAZOLE [Concomitant]
     Dosage: UNK

REACTIONS (1)
  - Intracardiac thrombus [Not Recovered/Not Resolved]
